FAERS Safety Report 5136809-9 (Version None)
Quarter: 2006Q4

REPORT INFORMATION
  Report Type: 
  Country: None (occurrence: None)
  Receive Date: 20061018
  Receipt Date: 20061011
  Transmission Date: 20070319
  Serious: Yes (Other)
  Sender: FDA-Public Use
  Company Number: 2006BH013610

PATIENT
  Age: 66 Year
  Sex: Female
  Weight: 70 kg

DRUGS (1)
  1. GAMMAGARD S/D [Suspect]
     Indication: RENAL NEOPLASM
     Dosage: 30 GM; EVERY MO; IV
     Route: 042
     Dates: start: 20060918, end: 20060918

REACTIONS (6)
  - BACK PAIN [None]
  - CHILLS [None]
  - ERYTHEMA [None]
  - HYPERTENSION [None]
  - OXYGEN SATURATION DECREASED [None]
  - TRANSFUSION REACTION [None]
